FAERS Safety Report 9022014 (Version 8)
Quarter: 2013Q4

REPORT INFORMATION
  Report Type: Report from Study
  Country: US (occurrence: US)
  Receive Date: 20130118
  Receipt Date: 20131231
  Transmission Date: 20140711
  Serious: Yes (Death, Hospitalization)
  Sender: FDA-Public Use
  Company Number: US-PFIZER INC-2013020664

PATIENT
  Age: 62 Year
  Sex: Male
  Weight: 63 kg

DRUGS (16)
  1. FLUOROURACIL [Suspect]
     Indication: OESOPHAGEAL CANCER METASTATIC
     Dosage: 400 MG/M2 ON DAY 1 EVERY 14 DAYS
     Route: 040
     Dates: start: 20120730
  2. FLUOROURACIL [Suspect]
     Dosage: 2400 MG/M2, FOR 46-48 HOURS ON DAY 1 EVERY 14 DAYS
     Route: 041
     Dates: start: 20120730
  3. OXALIPLATIN [Suspect]
     Indication: OESOPHAGEAL CANCER METASTATIC
     Dosage: 85 MG/M2, DAY 1 EVERY 14 DAYS
     Route: 042
     Dates: start: 20120730
  4. BLINDED THERAPY [Suspect]
     Indication: OESOPHAGEAL CANCER METASTATIC
     Dosage: DAY 1 EVERY 14 DAYS
     Route: 042
     Dates: start: 20120730
  5. LEUCOVORIN [Suspect]
     Indication: OESOPHAGEAL CANCER METASTATIC
     Dosage: 400 MG/M2, DAY 1 EVERY 14 DAYS
     Route: 042
     Dates: start: 20120730
  6. LEUCOVORIN [Suspect]
     Dosage: 740 MG, UNK
     Route: 042
     Dates: start: 20120905
  7. LEUCOVORIN [Suspect]
     Dosage: 720 MG, UNK
     Route: 042
     Dates: start: 20121025
  8. LEUCOVORIN [Suspect]
     Dosage: 730 MG, UNK
     Route: 042
     Dates: start: 20121107
  9. LEUCOVORIN [Suspect]
     Dosage: 680 MG, UNK
     Route: 042
     Dates: start: 20121207
  10. LEUCOVORIN [Suspect]
     Dosage: 690 MG, UNK
     Route: 042
     Dates: start: 20121221
  11. METOPROLOL [Concomitant]
  12. DECADRON [Concomitant]
  13. LORAZEPAM [Concomitant]
  14. METOCLOPRAMIDE [Concomitant]
  15. OXYCODONE [Concomitant]
  16. PROMETHAZINE [Concomitant]

REACTIONS (2)
  - Death [Fatal]
  - Dyspnoea [Unknown]
